FAERS Safety Report 17048184 (Version 1)
Quarter: 2019Q4

REPORT INFORMATION
  Report Type: Spontaneous
  Country: US (occurrence: US)
  Receive Date: 20191119
  Receipt Date: 20191119
  Transmission Date: 20200122
  Serious: Yes (Death, Life-Threatening, Hospitalization, Other)
  Sender: FDA-Public Use
  Company Number: US-ABBVIE-19K-163-2992847-00

PATIENT
  Age: 48 Year
  Sex: Female

DRUGS (2)
  1. LEVOTHYROXINE. [Concomitant]
     Active Substance: LEVOTHYROXINE
     Indication: PRODUCT USED FOR UNKNOWN INDICATION
  2. VALPROIC ACID. [Suspect]
     Active Substance: VALPROIC ACID
     Indication: PRODUCT USED FOR UNKNOWN INDICATION
     Route: 065

REACTIONS (9)
  - Hypotension [Fatal]
  - Mental status changes [Fatal]
  - Hypothermia [Fatal]
  - Ammonia increased [Fatal]
  - Hyperammonaemic encephalopathy [Fatal]
  - Urea cycle disorder [Fatal]
  - Hyperammonaemia [Fatal]
  - Brain oedema [Fatal]
  - Unmasking of previously unidentified disease [Not Recovered/Not Resolved]
